FAERS Safety Report 9478026 (Version 1)
Quarter: 2013Q3

REPORT INFORMATION
  Report Type: Report from Study
  Country: BR (occurrence: BR)
  Receive Date: 20130827
  Receipt Date: 20130827
  Transmission Date: 20140515
  Serious: Yes (Other)
  Sender: FDA-Public Use
  Company Number: PHHY2013BR092435

PATIENT
  Sex: Female

DRUGS (4)
  1. ACLASTA [Suspect]
     Dosage: 5 MG, UNK
     Route: 042
  2. CELEBRA ^PFIZER^ [Suspect]
     Indication: PAIN
  3. CALCIUM [Concomitant]
  4. OMEGA 3 [Concomitant]

REACTIONS (4)
  - Lower limb fracture [Recovering/Resolving]
  - Accident [Recovering/Resolving]
  - Amnesia [Recovering/Resolving]
  - Pain [Recovering/Resolving]
